FAERS Safety Report 21944942 (Version 1)
Quarter: 2023Q1

REPORT INFORMATION
  Report Type: Spontaneous
  Country: DE (occurrence: DE)
  Receive Date: 20230202
  Receipt Date: 20230202
  Transmission Date: 20230418
  Serious: Yes (Other)
  Sender: FDA-Public Use
  Company Number: None

PATIENT
  Sex: Female
  Weight: 2 kg

DRUGS (2)
  1. LAMOTRIGINE [Suspect]
     Active Substance: LAMOTRIGINE
     Indication: Bipolar disorder
     Dosage: 200 [MG/D ]
     Route: 063
  2. ESCITALOPRAM [Concomitant]
     Active Substance: ESCITALOPRAM OXALATE
     Indication: Bipolar disorder
     Dosage: 20 [MG/D ]
     Route: 063

REACTIONS (4)
  - Agitation neonatal [Recovered/Resolved]
  - Exposure during pregnancy [Unknown]
  - Maternal exposure during breast feeding [Unknown]
  - Selective eating disorder [Recovered/Resolved]
